FAERS Safety Report 6451791-X (Version None)
Quarter: 2009Q4

REPORT INFORMATION
  Report Type: 
  Country: None (occurrence: None)
  Receive Date: 20091123
  Receipt Date: 20091117
  Transmission Date: 20100525
  Serious: Yes (Other)
  Sender: FDA-Public Use
  Company Number: JP-SANOFI-AVENTIS-2009SA002500

PATIENT
  Sex: Male

DRUGS (2)
  1. DOCETAXEL [Suspect]
     Indication: PROSTATE CANCER
     Dosage: 60MG-80MG/BODY PER 3-4 WEEKS
     Route: 041
  2. DEXAMETHASONE [Concomitant]
     Indication: PROSTATE CANCER

REACTIONS (1)
  - COMPRESSION FRACTURE [None]
